FAERS Safety Report 15676375 (Version 1)
Quarter: 2018Q4

REPORT INFORMATION
  Report Type: Spontaneous
  Country: NO (occurrence: NO)
  Receive Date: 20181130
  Receipt Date: 20181130
  Transmission Date: 20190205
  Serious: Yes (Other)
  Sender: FDA-Public Use
  Company Number: NO-SAKK-2018SA151509AA

PATIENT
  Sex: Male

DRUGS (1)
  1. LYXUMIA [Suspect]
     Active Substance: LIXISENATIDE
     Dosage: UNK, UNK
     Route: 065

REACTIONS (1)
  - Drug abuse [Unknown]
